FAERS Safety Report 20516178 (Version 1)
Quarter: 2022Q1

REPORT INFORMATION
  Report Type: Spontaneous
  Country: GB (occurrence: GB)
  Receive Date: 20220225
  Receipt Date: 20220225
  Transmission Date: 20220423
  Serious: Yes (Other)
  Sender: FDA-Public Use
  Company Number: GB-AMGEN-GBRSP2022032482

PATIENT

DRUGS (2)
  1. PROLIA [Suspect]
     Active Substance: DENOSUMAB
     Indication: Osteoporosis
     Dosage: UNK
     Route: 065
     Dates: start: 20190317
  2. PREDNISONE [Concomitant]
     Active Substance: PREDNISONE

REACTIONS (10)
  - Deafness [Unknown]
  - Nasal congestion [Unknown]
  - Vision blurred [Unknown]
  - Dizziness [Unknown]
  - Ulcer [Unknown]
  - Calcinosis [Unknown]
  - Asthenia [Unknown]
  - Myalgia [Unknown]
  - Fatigue [Unknown]
  - Alopecia [Unknown]
